FAERS Safety Report 4760118-0 (Version None)
Quarter: 2005Q3

REPORT INFORMATION
  Report Type: 
  Country: None (occurrence: None)
  Receive Date: 20050902
  Receipt Date: 20050610
  Transmission Date: 20060218
  Serious: No
  Sender: FDA-Public Use
  Company Number: US-GLAXOSMITHKLINE-A0562138A

PATIENT
  Age: 55 Year
  Sex: Female
  Weight: 136.4 kg

DRUGS (1)
  1. REQUIP [Suspect]
     Route: 048
     Dates: start: 20050523, end: 20050603

REACTIONS (1)
  - RASH PRURITIC [None]
